FAERS Safety Report 5378040-8 (Version None)
Quarter: 2007Q2

REPORT INFORMATION
  Report Type: 
  Country: None (occurrence: None)
  Receive Date: 20070629
  Receipt Date: 20070620
  Transmission Date: 20071010
  Serious: Yes (Hospitalization)
  Sender: FDA-Public Use
  Company Number: 2007324767

PATIENT
  Age: 85 Year
  Sex: Female
  Weight: 70.3 kg

DRUGS (2)
  1. BENADRYL [Suspect]
     Indication: HYPERSENSITIVITY
     Dosage: ONE CAPSULE AT BEDTIME (1 IN 1 D), ORAL
     Route: 048
     Dates: start: 20070601, end: 20070601
  2. GABAPENTIN [Concomitant]

REACTIONS (6)
  - ABDOMINAL PAIN UPPER [None]
  - NECK PAIN [None]
  - OESOPHAGEAL INFECTION [None]
  - OESOPHAGEAL OEDEMA [None]
  - ORAL INTAKE REDUCED [None]
  - PHARYNGOLARYNGEAL PAIN [None]
